FAERS Safety Report 6428950-5 (Version None)
Quarter: 2009Q4

REPORT INFORMATION
  Report Type: 
  Country: None (occurrence: None)
  Receive Date: 20091105
  Receipt Date: 20091022
  Transmission Date: 20100525
  Serious: Yes (Disabling, Other)
  Sender: FDA-Public Use
  Company Number: GB-MYLANLABS-2009S1018459

PATIENT
  Age: 47 Year
  Sex: Female

DRUGS (6)
  1. WARFARIN SODIUM [Suspect]
     Indication: PULMONARY EMBOLISM
     Route: 048
  2. FUCUS /01045501/ [Suspect]
     Indication: WEIGHT DECREASED
     Route: 048
     Dates: start: 20090910, end: 20090916
  3. JUGLANS CINEREA [Suspect]
     Indication: WEIGHT DECREASED
     Route: 048
     Dates: start: 20090910, end: 20090916
  4. PEUMUS BOLDUS [Suspect]
     Indication: WEIGHT DECREASED
     Route: 048
     Dates: start: 20090910, end: 20090916
  5. TARAXACUM OFFICINALE [Suspect]
     Indication: WEIGHT DECREASED
     Route: 048
     Dates: start: 20090910, end: 20090916
  6. LEVOTHYROXINE SODIUM [Concomitant]
     Indication: HYPOTHYROIDISM
     Route: 048

REACTIONS (3)
  - DRUG INTERACTION [None]
  - INTERNATIONAL NORMALISED RATIO INCREASED [None]
  - VAGINAL HAEMORRHAGE [None]
